FAERS Safety Report 5189027-2 (Version None)
Quarter: 2006Q4

REPORT INFORMATION
  Report Type: 
  Country: None (occurrence: None)
  Receive Date: 20061215
  Receipt Date: 20061209
  Transmission Date: 20070319
  Serious: Yes (Other)
  Sender: FDA-Public Use
  Company Number: 2006151100

PATIENT
  Age: 18 Month
  Sex: Female

DRUGS (1)
  1. PURELL ORIGINAL (ETHYL ALCOHOL) [Suspect]
     Indication: ACCIDENTAL EXPOSURE
     Dosage: A 5 OZ. BOTTLE ONCE, ORAL
     Route: 048
     Dates: start: 20061209, end: 20061209

REACTIONS (4)
  - ACCIDENTAL DRUG INTAKE BY CHILD [None]
  - FEELING DRUNK [None]
  - GAIT DISTURBANCE [None]
  - INCORRECT ROUTE OF DRUG ADMINISTRATION [None]
